FAERS Safety Report 8790875 (Version 1)
Quarter: 2012Q4

REPORT INFORMATION
  Report Type: Spontaneous
  Country: US (occurrence: None)
  Receive Date: 20120913
  Receipt Date: 20120913
  Transmission Date: 20130627
  Serious: Yes (Hospitalization)
  Sender: FDA-Public Use
  Company Number: None

PATIENT
  Age: 67 Year
  Sex: Male
  Weight: 155.9 kg

DRUGS (4)
  1. WARFARIN [Suspect]
     Indication: ATRIAL FIBRILLATION
     Route: 048
     Dates: start: 20120813, end: 20120908
  2. WARFARIN [Suspect]
     Indication: CONGESTIVE HEART FAILURE
     Route: 048
     Dates: start: 20120813, end: 20120908
  3. ASPIRIN [Suspect]
     Indication: CONGESTIVE HEART FAILURE
     Route: 048
     Dates: start: 20120827, end: 20120908
  4. ASPIRIN [Suspect]
     Indication: ATRIAL FIBRILLATION
     Route: 048
     Dates: start: 20120827, end: 20120908

REACTIONS (3)
  - Gastric haemorrhage [None]
  - Rectal haemorrhage [None]
  - Nausea [None]
